FAERS Safety Report 12314890 (Version 3)
Quarter: 2016Q2

REPORT INFORMATION
  Report Type: Spontaneous
  Country: JP (occurrence: JP)
  Receive Date: 20160428
  Receipt Date: 20160523
  Transmission Date: 20160815
  Serious: Yes (Hospitalization)
  Sender: FDA-Public Use
  Company Number: JP-ABBVIE-16P-087-1615386-00

PATIENT
  Age: 78 Year
  Sex: Male

DRUGS (2)
  1. LIPACREON [Suspect]
     Active Substance: PANCRELIPASE
     Indication: DIARRHOEA
     Route: 048
  2. LIPACREON [Suspect]
     Active Substance: PANCRELIPASE
     Route: 065

REACTIONS (5)
  - Lumbar vertebral fracture [Unknown]
  - Drug ineffective [Unknown]
  - Fall [Unknown]
  - Constipation [Unknown]
  - Abdominal discomfort [Unknown]
